FAERS Safety Report 9333544 (Version 3)
Quarter: 2013Q4

REPORT INFORMATION
  Report Type: Spontaneous
  Country: US (occurrence: US)
  Receive Date: 20130606
  Receipt Date: 20131206
  Transmission Date: 20140711
  Serious: Yes (Other)
  Sender: FDA-Public Use
  Company Number: US-PFIZER INC-2013170255

PATIENT
  Age: 63 Year
  Sex: Male

DRUGS (1)
  1. BOSULIF [Suspect]
     Indication: CHRONIC MYELOID LEUKAEMIA (IN REMISSION)
     Dosage: 200 MG, 1X/DAY, (STRENGTH: 100 MG)
     Route: 048
     Dates: start: 20130225

REACTIONS (2)
  - Dyspnoea exertional [Unknown]
  - Rash pruritic [Unknown]
